FAERS Safety Report 4340073-8 (Version None)
Quarter: 2004Q2

REPORT INFORMATION
  Report Type: 
  Country: None (occurrence: None)
  Receive Date: 20040415
  Receipt Date: 20040415
  Transmission Date: 20050107
  Serious: Yes (Hospitalization)
  Sender: FDA-Public Use
  Company Number: None

PATIENT
  Age: 70 Year
  Sex: Male
  Weight: 74.1 kg

DRUGS (10)
  1. WARFARIN SODIUM [Suspect]
     Indication: ATRIAL FIBRILLATION
     Dosage: 5 MG DAILY ORAL
     Route: 048
     Dates: start: 20021225, end: 20021225
  2. AMIODARONE HCL [Suspect]
     Indication: ATRIAL FIBRILLATION
     Dosage: 200 MG  DAILY ORAL
     Route: 048
     Dates: start: 20021225, end: 20031225
  3. FLOMAX [Concomitant]
  4. XALATAN [Concomitant]
  5. CARDIZEM [Concomitant]
  6. LASIX [Concomitant]
  7. QUININE [Concomitant]
  8. XOPENEX [Concomitant]
  9. ATROVENT [Concomitant]
  10. COMBIVENT [Concomitant]

REACTIONS (9)
  - ALCOHOL USE [None]
  - CONFUSIONAL STATE [None]
  - CONTUSION [None]
  - DRUG INTERACTION [None]
  - HAEMORRHAGE [None]
  - HYPERCOAGULATION [None]
  - INTERNATIONAL NORMALISED RATIO ABNORMAL [None]
  - MEDICATION ERROR [None]
  - PROTHROMBIN TIME PROLONGED [None]
